FAERS Safety Report 4353143-5 (Version None)
Quarter: 2004Q2

REPORT INFORMATION
  Report Type: 
  Country: None (occurrence: None)
  Receive Date: 20040429
  Receipt Date: 20040416
  Transmission Date: 20050107
  Serious: Yes (Other)
  Sender: FDA-Public Use
  Company Number: 2004026081

PATIENT
  Sex: Male

DRUGS (3)
  1. NEURONTIN [Suspect]
     Indication: PHANTOM PAIN
     Dosage: 1200 (TID)
     Dates: start: 20040101
  2. ANTIPSYCHOTICS [Concomitant]
  3. ANXIOLYTICS [Concomitant]

REACTIONS (4)
  - DRUG ABUSER [None]
  - DRUG DEPENDENCE [None]
  - DRUG INEFFECTIVE [None]
  - PSYCHOPATHIC PERSONALITY [None]
